FAERS Safety Report 24629762 (Version 1)
Quarter: 2024Q4

REPORT INFORMATION
  Report Type: Report from Study
  Country: CN (occurrence: CN)
  Receive Date: 20241118
  Receipt Date: 20241118
  Transmission Date: 20250115
  Serious: Yes (Other)
  Sender: ROCHE
  Company Number: CN-ROCHE-10000130420

PATIENT

DRUGS (1)
  1. TOCILIZUMAB [Suspect]
     Active Substance: TOCILIZUMAB
     Indication: Rheumatic disorder
     Route: 042

REACTIONS (22)
  - Drug-induced liver injury [Unknown]
  - Hypersensitivity [Unknown]
  - Joint swelling [Unknown]
  - Paronychia [Unknown]
  - Hypercholesterolaemia [Unknown]
  - Hypertriglyceridaemia [Unknown]
  - Hyperbilirubinaemia [Unknown]
  - Serum sickness [Unknown]
  - Off label use [Unknown]
  - Arthralgia [Unknown]
  - Neutropenia [Unknown]
  - Dyslipidaemia [Unknown]
  - Hyperlipidaemia [Unknown]
  - Rash [Unknown]
  - Chills [Unknown]
  - Cold sweat [Unknown]
  - Peripheral coldness [Unknown]
  - Blood pressure decreased [Unknown]
  - Heart rate increased [Unknown]
  - Chest discomfort [Unknown]
  - Pallor [Unknown]
  - White blood cell count increased [Unknown]
